FAERS Safety Report 16766170 (Version 1)
Quarter: 2019Q3

REPORT INFORMATION
  Report Type: Spontaneous
  Country: US (occurrence: US)
  Receive Date: 20190903
  Receipt Date: 20190903
  Transmission Date: 20191005
  Serious: Yes (Other)
  Sender: FDA-Public Use
  Company Number: US-US WORLDMEDS, LLC-USW201908-001599

PATIENT
  Age: 25 Year
  Sex: Female
  Weight: 102.2 kg

DRUGS (4)
  1. PANTOPRAZOLE [Suspect]
     Active Substance: PANTOPRAZOLE
     Indication: PRODUCT USED FOR UNKNOWN INDICATION
  2. NADOLOL. [Suspect]
     Active Substance: NADOLOL
     Indication: PRODUCT USED FOR UNKNOWN INDICATION
  3. FREMANEZUMAB [Suspect]
     Active Substance: FREMANEZUMAB
     Indication: PRODUCT USED FOR UNKNOWN INDICATION
  4. XARELTO [Suspect]
     Active Substance: RIVAROXABAN
     Indication: PRODUCT USED FOR UNKNOWN INDICATION

REACTIONS (12)
  - Nervousness [Unknown]
  - Anxiety [Unknown]
  - Weight loss poor [Unknown]
  - Abdominal pain lower [Not Recovered/Not Resolved]
  - Chest pain [Unknown]
  - Emotional disorder [Unknown]
  - Therapy cessation [Unknown]
  - Fibromyalgia [Unknown]
  - Thrombosis [Unknown]
  - Deep vein thrombosis [Unknown]
  - Pain in extremity [Not Recovered/Not Resolved]
  - Cyst [Not Recovered/Not Resolved]

NARRATIVE: CASE EVENT DATE: 2019
